FAERS Safety Report 8392089-2 (Version None)
Quarter: 2012Q1

REPORT INFORMATION
  Report Type: 
  Country: None (occurrence: None)
  Receive Date: 20120323
  Receipt Date: 20110315
  Transmission Date: 20120608
  Serious: Yes (Other)
  Sender: FDA-Public Use
  Company Number: 163-21880-11030110

PATIENT
  Age: 63 Year
  Sex: Female
  Weight: 156 kg

DRUGS (3)
  1. EXJADE (DEFERASIROX)(UNKNOWN) [Concomitant]
  2. REVLIMID [Suspect]
     Indication: MYELODYSPLASTIC SYNDROME
     Dosage: 15 MG, DAILY ON  DAYS 1-28, PO,  10 MG, 1 IN 1 D, PO
     Route: 048
     Dates: start: 20110304
  3. REVLIMID [Suspect]
     Indication: MYELODYSPLASTIC SYNDROME
     Dosage: 15 MG, DAILY ON  DAYS 1-28, PO,  10 MG, 1 IN 1 D, PO
     Route: 048
     Dates: start: 20101101, end: 20110215

REACTIONS (1)
  - NEUTROPENIA [None]
